FAERS Safety Report 11880510 (Version 2)
Quarter: 2016Q1

REPORT INFORMATION
  Report Type: Spontaneous
  Country: FR (occurrence: FR)
  Receive Date: 20151230
  Receipt Date: 20160108
  Transmission Date: 20160526
  Serious: Yes (Death, Other)
  Sender: FDA-Public Use
  Company Number: FR-TEVA-617986ISR

PATIENT
  Age: 58 Year
  Sex: Female

DRUGS (7)
  1. PACLITAXEL TEVA 6 MG/ML [Suspect]
     Active Substance: PACLITAXEL
     Dosage: 145 MILLIGRAM DAILY;
     Route: 042
     Dates: start: 20151112, end: 20151112
  2. CORTANCYL [Concomitant]
     Active Substance: PREDNISONE
     Indication: PREMEDICATION
     Dosage: 40 MILLIGRAM DAILY;
     Route: 048
     Dates: start: 20151103
  3. ZOPHREN 8 MG [Suspect]
     Active Substance: ONDANSETRON
     Indication: PREMEDICATION
     Dosage: 1 DOSAGE FORMS DAILY;
     Route: 048
     Dates: start: 20151112, end: 20151112
  4. DEXAMETHASONE. [Suspect]
     Active Substance: DEXAMETHASONE
     Indication: CHEMOTHERAPY
     Dosage: 20 MILLIGRAM DAILY;
     Route: 042
     Dates: start: 20151112, end: 20151112
  5. PACLITAXEL TEVA 6 MG/ML [Suspect]
     Active Substance: PACLITAXEL
     Indication: CHEMOTHERAPY
     Dosage: 1  DAILY; BETWEEN 140 AND 150 MG RECEIVED DURING THE FIRST INFUSION
     Route: 042
     Dates: start: 20151105, end: 20151105
  6. CETIRIZINE [Concomitant]
     Active Substance: CETIRIZINE HYDROCHLORIDE
     Indication: PREMEDICATION
  7. DAFALGAN [Suspect]
     Active Substance: ACETAMINOPHEN
     Dosage: 1 DOSAGE FORMS DAILY;
     Route: 048
     Dates: start: 20151112, end: 20151112

REACTIONS (6)
  - Arrhythmia [Unknown]
  - Nausea [Unknown]
  - Loss of consciousness [Unknown]
  - Fatigue [Unknown]
  - Urinary incontinence [Unknown]
  - Death [Fatal]

NARRATIVE: CASE EVENT DATE: 20151112
